FAERS Safety Report 20724558 (Version 4)
Quarter: 2022Q2

REPORT INFORMATION
  Report Type: Spontaneous
  Country: JP (occurrence: JP)
  Receive Date: 20220419
  Receipt Date: 20220614
  Transmission Date: 20220721
  Serious: Yes (Hospitalization, Other)
  Sender: FDA-Public Use
  Company Number: JP-PFIZER INC-202200584892

PATIENT
  Age: 49 Year
  Sex: Female

DRUGS (2)
  1. XELJANZ [Suspect]
     Active Substance: TOFACITINIB CITRATE
     Indication: Colitis ulcerative
     Dosage: 10 MG, DAILY
     Route: 048
     Dates: start: 20200107, end: 20220318
  2. LIALDA [Suspect]
     Active Substance: MESALAMINE
     Dosage: 4800 MG, DAILY
     Route: 048

REACTIONS (4)
  - Bartholin^s abscess [Not Recovered/Not Resolved]
  - Condition aggravated [Not Recovered/Not Resolved]
  - Subcutaneous abscess [Unknown]
  - Skin necrosis [Unknown]

NARRATIVE: CASE EVENT DATE: 20220301
